FAERS Safety Report 21404600 (Version 1)
Quarter: 2022Q4

REPORT INFORMATION
  Report Type: Spontaneous
  Country: FR (occurrence: FR)
  Receive Date: 20221003
  Receipt Date: 20221003
  Transmission Date: 20230112
  Serious: Yes (Hospitalization)
  Sender: FDA-Public Use
  Company Number: None

PATIENT
  Age: 8 Year
  Sex: Female
  Weight: 29.6 kg

DRUGS (7)
  1. DEXAMETHASONE [Suspect]
     Active Substance: DEXAMETHASONE
     Indication: Acute lymphocytic leukaemia
     Dosage: CURE FROM D1 TO D5 20MG/M2 I.E. 20MG/DAY IN 2 DOSES
     Route: 042
     Dates: start: 20220729, end: 20220803
  2. PEGASPARGASE [Suspect]
     Active Substance: PEGASPARGASE
     Indication: Acute lymphocytic leukaemia
     Dosage: J4
     Route: 042
     Dates: start: 20220802, end: 20220802
  3. VINCRISTINE SULFATE [Suspect]
     Active Substance: VINCRISTINE SULFATE
     Indication: Acute lymphocytic leukaemia
     Dosage: CURE D1: 1.5MG/M2 I.E. 1.5MG OVER 15 MINUTES
     Route: 042
     Dates: start: 20220729, end: 20220729
  4. CYTARABINE [Suspect]
     Active Substance: CYTARABINE
     Indication: Acute lymphocytic leukaemia
     Dosage: 30 MG OF CYTARABINE ON D5 OF THE CURE
     Route: 037
     Dates: start: 20220803, end: 20220803
  5. CYTARABINE [Suspect]
     Active Substance: CYTARABINE
     Dosage: CURE D1 2G/12H OVER 3H?CURE D2: 2G/12H OVER 3H
     Route: 042
     Dates: start: 20220729, end: 20220730
  6. METHOTREXATE [Suspect]
     Active Substance: METHOTREXATE
     Indication: Acute lymphocytic leukaemia
     Dosage: 12MG ON D5 OF THE CURE
     Route: 037
     Dates: start: 20220803, end: 20220803
  7. PREDNISOLONE [Suspect]
     Active Substance: PREDNISOLONE
     Indication: Acute lymphocytic leukaemia
     Dosage: 10 MG ON D5 OF THE CURE
     Route: 037
     Dates: start: 20220803, end: 20220803

REACTIONS (1)
  - Posterior reversible encephalopathy syndrome [Recovered/Resolved]

NARRATIVE: CASE EVENT DATE: 20220804
